FAERS Safety Report 20976662 (Version 1)
Quarter: 2022Q2

REPORT INFORMATION
  Report Type: Spontaneous
  Country: SK (occurrence: SK)
  Receive Date: 20220617
  Receipt Date: 20220617
  Transmission Date: 20220721
  Serious: Yes (Hospitalization, Other)
  Sender: FDA-Public Use
  Company Number: SK-PFIZER INC-202200827052

PATIENT
  Age: 84 Year
  Sex: Female

DRUGS (6)
  1. METHYLPREDNISOLONE [Suspect]
     Active Substance: METHYLPREDNISOLONE
     Indication: Asthma
     Dosage: 2 MG
     Route: 048
  2. METHYLPREDNISOLONE [Suspect]
     Active Substance: METHYLPREDNISOLONE
     Dosage: 16 MG
     Route: 048
  3. FOSTER [Suspect]
     Active Substance: BECLOMETHASONE\FORMOTEROL
     Indication: Asthma
     Dosage: 200/6 2X2
  4. THEOPHYLLINE [Suspect]
     Active Substance: THEOPHYLLINE
     Indication: Asthma
  5. ALBUTEROL [Suspect]
     Active Substance: ALBUTEROL
     Indication: Asthma
     Dosage: UNK
  6. FLUTICASONE PROPIONATE AND SALMETEROL [Suspect]
     Active Substance: FLUTICASONE PROPIONATE\SALMETEROL XINAFOATE
     Indication: Asthma
     Dosage: 2X500 UG

REACTIONS (15)
  - Cushing^s syndrome [Unknown]
  - Asthma [Unknown]
  - Chlamydial infection [Unknown]
  - Type 2 diabetes mellitus [Unknown]
  - Ischaemic stroke [Unknown]
  - Hypokalaemia [Unknown]
  - Myocardial ischaemia [Unknown]
  - Cardiac failure [Unknown]
  - Osteoporosis [Unknown]
  - Hypertension [Unknown]
  - Hypercholesterolaemia [Unknown]
  - Fibrosis [Unknown]
  - Hyperuricaemia [Unknown]
  - Metabolic disorder [Unknown]
  - Hyperglycaemia [Unknown]

NARRATIVE: CASE EVENT DATE: 20190901
